FAERS Safety Report 13886817 (Version 1)
Quarter: 2017Q3

REPORT INFORMATION
  Report Type: Spontaneous
  Country: US (occurrence: US)
  Receive Date: 20170821
  Receipt Date: 20170821
  Transmission Date: 20171127
  Serious: No
  Sender: FDA-Public Use
  Company Number: US-ROCHE-1102763

PATIENT
  Sex: Female

DRUGS (7)
  1. ACTEMRA [Suspect]
     Active Substance: TOCILIZUMAB
     Indication: RHEUMATOID ARTHRITIS
     Route: 042
     Dates: start: 20120626
  2. ORENCIA [Concomitant]
     Active Substance: ABATACEPT
  3. PLAQUENIL [Concomitant]
     Active Substance: HYDROXYCHLOROQUINE SULFATE
  4. BABY ASPIRIN [Concomitant]
     Active Substance: ASPIRIN
  5. REMICADE [Concomitant]
     Active Substance: INFLIXIMAB
  6. PREDNISONE. [Concomitant]
     Active Substance: PREDNISONE
  7. HUMIRA [Concomitant]
     Active Substance: ADALIMUMAB

REACTIONS (5)
  - Hot flush [Unknown]
  - Fatigue [Unknown]
  - Sinus headache [Unknown]
  - Dizziness [Unknown]
  - Tinnitus [Unknown]
